FAERS Safety Report 10549427 (Version 2)
Quarter: 2015Q3

REPORT INFORMATION
  Report Type: Spontaneous
  Country: CN (occurrence: CN)
  Receive Date: 20141028
  Receipt Date: 20150915
  Transmission Date: 20151125
  Serious: Yes (Life-Threatening, Hospitalization, Other)
  Sender: FDA-Public Use
  Company Number: CN-PFIZER INC-2014292503

PATIENT
  Age: 76 Year
  Sex: Male
  Weight: 75 kg

DRUGS (1)
  1. TYGACIL [Suspect]
     Active Substance: TIGECYCLINE
     Indication: INFECTION
     Dosage: 50 MG, 2X/DAY
     Route: 041
     Dates: start: 20131113, end: 20131122

REACTIONS (3)
  - Gastrointestinal haemorrhage [Recovering/Resolving]
  - Haematochezia [Recovering/Resolving]
  - Coagulopathy [Recovering/Resolving]

NARRATIVE: CASE EVENT DATE: 20131123
